FAERS Safety Report 8766502 (Version 2)
Quarter: 2015Q2

REPORT INFORMATION
  Report Type: Report from Study
  Country: US (occurrence: US)
  Receive Date: 20120904
  Receipt Date: 20150410
  Transmission Date: 20150821
  Serious: Yes (Death)
  Sender: FDA-Public Use
  Company Number: US-ROCHE-CID000000002091173

PATIENT
  Sex: Female

DRUGS (4)
  1. XELODA [Suspect]
     Active Substance: CAPECITABINE
     Indication: GENITAL NEOPLASM MALIGNANT FEMALE
     Dosage: 4 TABLETS
     Route: 048
  2. AVASTIN [Suspect]
     Active Substance: BEVACIZUMAB
     Indication: GENITAL NEOPLASM MALIGNANT FEMALE
     Route: 042
  3. TARCEVA [Suspect]
     Active Substance: ERLOTINIB HYDROCHLORIDE
     Indication: GENITAL NEOPLASM MALIGNANT FEMALE
     Route: 048
  4. XELODA [Suspect]
     Active Substance: CAPECITABINE
     Indication: VULVAL CANCER

REACTIONS (2)
  - Off label use [Unknown]
  - Death [Fatal]
